FAERS Safety Report 5673568-5 (Version None)
Quarter: 2008Q2

REPORT INFORMATION
  Report Type: 
  Country: None (occurrence: None)
  Receive Date: 20080226
  Receipt Date: 20070820
  Transmission Date: 20081010
  Serious: Yes (Other)
  Sender: FDA-Public Use
  Company Number: 512835

PATIENT
  Sex: Male

DRUGS (3)
  1. ACCUTANE [Suspect]
     Indication: DRUG USE FOR UNKNOWN INDICATION
     Dosage: ORAL
     Route: 048
     Dates: start: 20030615, end: 20031015
  2. AMNESTEEM [Suspect]
     Indication: ACNE
     Dates: start: 20030715, end: 20050115
  3. CLARAVIS [Suspect]
     Indication: ACNE
     Dates: start: 20030815, end: 20030915

REACTIONS (1)
  - INFLAMMATORY BOWEL DISEASE [None]
